FAERS Safety Report 18951921 (Version 2)
Quarter: 2021Q1

REPORT INFORMATION
  Report Type: Report from Study
  Country: US (occurrence: US)
  Receive Date: 20210301
  Receipt Date: 20210322
  Transmission Date: 20210420
  Serious: Yes (Death, Other)
  Sender: FDA-Public Use
  Company Number: US-ACADIA PHARMACEUTICALS INC.-ACA-2021-PIM-000724

PATIENT
  Age: 77 Year
  Sex: Female

DRUGS (19)
  1. NUPLAZID [Suspect]
     Active Substance: PIMAVANSERIN TARTRATE
     Indication: PARKINSON^S DISEASE
     Dosage: 20 MG (2 ?10 MG TABLETS) IN THE MORNING AND 30MG (3 ? 10MG TABLETS) AT NIGHT
     Route: 048
     Dates: start: 20190211
  2. NUPLAZID [Suspect]
     Active Substance: PIMAVANSERIN TARTRATE
     Dosage: 34 MILLIGRAM (17MG+17MG), QD
     Route: 065
     Dates: start: 20171127
  3. LEVSIN [Concomitant]
     Active Substance: HYOSCYAMINE SULFATE
     Dosage: 1 TABLET AS NEEDED EVERY 4 HOURS
     Route: 048
     Dates: start: 20201125
  4. CYMBALTA [Concomitant]
     Active Substance: DULOXETINE HYDROCHLORIDE
     Dosage: 60, 1 CAPSULE ONCE A DAY
     Route: 048
  5. HYDROXYCHLOROQUINE SULFATE. [Concomitant]
     Active Substance: HYDROXYCHLOROQUINE SULFATE
     Dosage: 1 TABLET TWICE A DAY
     Route: 048
  6. BUSPIRONE HCL [Concomitant]
     Active Substance: BUSPIRONE HYDROCHLORIDE
     Dosage: 1 TABLET ONCE A DAY
     Route: 048
  7. NUPLAZID [Suspect]
     Active Substance: PIMAVANSERIN TARTRATE
     Dosage: 51 MILLIGRAM (17MG+17MG+17MG), QD
     Route: 065
     Dates: start: 20180924
  8. CLONAZEPAM. [Concomitant]
     Active Substance: CLONAZEPAM
     Dosage: 1 TABLET ON TONGUE ALLOW TO DISSOLVE EVERY MORNING ONCE A DAY
     Route: 048
  9. CLONAZEPAM. [Concomitant]
     Active Substance: CLONAZEPAM
     Dosage: 1MG TABLET, AT BEDTIME
     Route: 048
     Dates: start: 20190227
  10. DOK [Concomitant]
     Active Substance: DOCUSATE SODIUM
     Dosage: 1 TABLET ONCE A DAY
     Route: 048
  11. CELEBREX [Concomitant]
     Active Substance: CELECOXIB
     Dosage: 1 CAPSULE WITH FOOD TWICE A DAY
     Route: 048
  12. CLEARLAX [Concomitant]
     Active Substance: POLYETHYLENE GLYCOL 3350
     Dosage: TWICE A WEEK
     Route: 048
  13. NUPLAZID [Suspect]
     Active Substance: PIMAVANSERIN TARTRATE
     Indication: PARKINSON^S DISEASE
     Dosage: 17 MILLIGRAM, QD
     Route: 065
     Dates: start: 20170720
  14. MORPHINE SULFATE. [Concomitant]
     Active Substance: MORPHINE SULFATE
     Dosage: 20MG/5ML SOLUTION, 0.25?0.5ML AS NEEDED EVERY 1 HOUR
     Route: 048
     Dates: start: 20201125
  15. ACETAMINOPHEN. [Concomitant]
     Active Substance: ACETAMINOPHEN
     Dosage: 1 CAPSULE AS NEEDED EVERY 6 HOURS
     Route: 048
  16. TRAMADOL HCL [Concomitant]
     Active Substance: TRAMADOL HYDROCHLORIDE
     Dosage: 1 TABLET AS NEEDED EVERY 6 HOURS
     Route: 048
     Dates: start: 20201023
  17. ARICEPT [Concomitant]
     Active Substance: DONEPEZIL HYDROCHLORIDE
     Dosage: 1 TABLET TWICE A DAY
     Route: 048
     Dates: start: 20191220
  18. CARBIDOPA/LEVODOPA [Concomitant]
     Active Substance: CARBIDOPA\LEVODOPA
     Dosage: 1 TABLET ORALLY 3 TIMES A DAY
  19. CARBIDOPA/LEVODOPA [Concomitant]
     Active Substance: CARBIDOPA\LEVODOPA
     Dosage: 25?100 MG, 2 TABLETS DOUR TIMES DAY
     Route: 048

REACTIONS (5)
  - Hallucination [Unknown]
  - Inappropriate schedule of product administration [Unknown]
  - Death [Recovered/Resolved]
  - Prescribed underdose [Unknown]
  - Prescribed overdose [Unknown]

NARRATIVE: CASE EVENT DATE: 202011
